FAERS Safety Report 6045091-X (Version None)
Quarter: 2009Q1

REPORT INFORMATION
  Report Type: 
  Country: None (occurrence: None)
  Receive Date: 20090121
  Receipt Date: 20090112
  Transmission Date: 20090719
  Serious: Yes (Hospitalization)
  Sender: FDA-Public Use
  Company Number: FR-BIOGENIDEC-2008BI028735

PATIENT
  Sex: Female

DRUGS (3)
  1. TYSABRI [Suspect]
     Indication: RELAPSING-REMITTING MULTIPLE SCLEROSIS
     Route: 042
     Dates: start: 20070816, end: 20080714
  2. DEPAKENE [Concomitant]
     Indication: EPILEPSY
     Dates: start: 19860101
  3. KEPPRA [Concomitant]
     Indication: EPILEPSY
     Dates: start: 20080327

REACTIONS (3)
  - EPILEPSY [None]
  - LYMPHOCYTOSIS [None]
  - MULTIPLE SCLEROSIS RELAPSE [None]
